FAERS Safety Report 8869780 (Version 5)
Quarter: 2014Q4

REPORT INFORMATION
  Report Type: Report from Study
  Country: CA (occurrence: CA)
  Receive Date: 20121028
  Receipt Date: 20141021
  Transmission Date: 20150529
  Serious: Yes (Hospitalization, Other)
  Sender: FDA-Public Use
  Company Number: CA-JNJFOC-20121008377

PATIENT
  Age: 42 Year
  Sex: Female
  Weight: 125.19 kg

DRUGS (3)
  1. REMICADE [Suspect]
     Active Substance: INFLIXIMAB
     Indication: PSORIASIS
     Route: 042
  2. REMICADE [Suspect]
     Active Substance: INFLIXIMAB
     Indication: PSORIASIS
     Route: 042
     Dates: start: 200904, end: 201204
  3. REMICADE [Suspect]
     Active Substance: INFLIXIMAB
     Indication: PSORIASIS
     Route: 042
     Dates: start: 200908

REACTIONS (7)
  - Psoriasis [Unknown]
  - Abdominoplasty [Unknown]
  - Pancreatitis [Unknown]
  - Fluid retention [Unknown]
  - Cholelithiasis [Unknown]
  - Weight decreased [Unknown]
  - Postoperative abscess [Unknown]

NARRATIVE: CASE EVENT DATE: 20111128
